FAERS Safety Report 24755330 (Version 3)
Quarter: 2025Q1

REPORT INFORMATION
  Report Type: Report from Study
  Country: US (occurrence: US)
  Receive Date: 20241219
  Receipt Date: 20250303
  Transmission Date: 20250408
  Serious: Yes (Other)
  Sender: ABBVIE
  Company Number: US-ABBVIE-6042752

PATIENT
  Age: 76 Year
  Sex: Male
  Weight: 74.842 kg

DRUGS (1)
  1. LUMIGAN [Suspect]
     Active Substance: BIMATOPROST
     Indication: Glaucoma
     Dosage: 1 DROP IN EACH EYE?STRENGTH: 0.1MG/ML
     Route: 047
     Dates: start: 2021

REACTIONS (7)
  - Malocclusion [Recovering/Resolving]
  - Bite [Unknown]
  - Tongue biting [Unknown]
  - Tooth abscess [Recovered/Resolved]
  - Periodontal disease [Recovering/Resolving]
  - Dental bone graft [Unknown]
  - Infection [Recovered/Resolved]

NARRATIVE: CASE EVENT DATE: 20220101
